FAERS Safety Report 6097493-3 (Version None)
Quarter: 2009Q1

REPORT INFORMATION
  Report Type: 
  Country: None (occurrence: None)
  Receive Date: 20090225
  Receipt Date: 20090225
  Transmission Date: 20090719
  Serious: Yes (Other)
  Sender: FDA-Public Use
  Company Number: None

PATIENT
  Sex: Male
  Weight: 83.9154 kg

DRUGS (1)
  1. SOLODYN [Suspect]
     Indication: ACTINIC KERATOSIS
     Dates: start: 20061004, end: 20061105

REACTIONS (13)
  - ARTHRALGIA [None]
  - ASTHENIA [None]
  - CONFUSIONAL STATE [None]
  - DIARRHOEA [None]
  - DRUG INTOLERANCE [None]
  - DYSPNOEA [None]
  - EYE DISORDER [None]
  - FEAR [None]
  - IMPAIRED WORK ABILITY [None]
  - INSOMNIA [None]
  - LETHARGY [None]
  - LOSS OF EMPLOYMENT [None]
  - VISION BLURRED [None]
